FAERS Safety Report 11486768 (Version 3)
Quarter: 2016Q4

REPORT INFORMATION
  Report Type: Report from Study
  Country: US (occurrence: US)
  Receive Date: 20150910
  Receipt Date: 20161020
  Transmission Date: 20170206
  Serious: Yes (Other)
  Sender: FDA-Public Use
  Company Number: US-AMGEN-USASL2015091426

PATIENT
  Age: 62 Year
  Sex: Male

DRUGS (2)
  1. ENBREL [Suspect]
     Active Substance: ETANERCEPT
     Indication: PSORIASIS
     Dosage: UNK UNK, OTHER DAY ON MONDAY, WEDNESDAY AND FRIDAY.
     Route: 065
     Dates: start: 2008
  2. ENBREL [Suspect]
     Active Substance: ETANERCEPT
     Dosage: EVERY OTHER DAY ON MONDAY, WEDNESDAY AND FRIDAY
     Route: 065

REACTIONS (4)
  - Psoriasis [Unknown]
  - Tremor [Unknown]
  - Hepatitis C [Unknown]
  - Liver disorder [Unknown]
